FAERS Safety Report 9408907 (Version 2)
Quarter: 2013Q4

REPORT INFORMATION
  Report Type: Spontaneous
  Country: FR (occurrence: FR)
  Receive Date: 20130719
  Receipt Date: 20131114
  Transmission Date: 20140711
  Serious: Yes (Hospitalization)
  Sender: FDA-Public Use
  Company Number: FR-009507513-1307FRA005957

PATIENT
  Age: 62 Year
  Sex: Male

DRUGS (11)
  1. JANUMET [Suspect]
     Indication: INSULIN-REQUIRING TYPE 2 DIABETES MELLITUS
     Dosage: 3 DF, QD
     Route: 048
     Dates: end: 20130605
  2. INEGY [Concomitant]
  3. PLAVIX [Concomitant]
  4. PROCORALAN [Concomitant]
  5. SPIRIVA [Concomitant]
  6. LYRICA [Concomitant]
  7. INEXIUM [Concomitant]
  8. SEROPLEX [Concomitant]
  9. ONBREZ [Concomitant]
  10. LANTUS [Concomitant]
  11. LEVOTHYROX [Concomitant]

REACTIONS (2)
  - Hyperlactacidaemia [Recovered/Resolved]
  - Overdose [Unknown]
